FAERS Safety Report 5521590-1 (Version None)
Quarter: 2007Q4

REPORT INFORMATION
  Report Type: 
  Country: None (occurrence: None)
  Receive Date: 20071115
  Receipt Date: 20071106
  Transmission Date: 20080405
  Serious: Yes (Hospitalization)
  Sender: FDA-Public Use
  Company Number: 150001L07ITA

PATIENT
  Age: 40 Year
  Sex: Female

DRUGS (2)
  1. CHORIONIC GONADTROPIN [Suspect]
     Indication: ASSISTED FERTILISATION
  2. LUTROPIN ALFA (LUTROPIN ALFA) [Suspect]
     Indication: ASSISTED FERTILISATION

REACTIONS (5)
  - CAESAREAN SECTION [None]
  - MYOCARDIAL INFARCTION [None]
  - OESTRADIOL INCREASED [None]
  - OVARIAN DISORDER [None]
  - PREGNANCY [None]
